FAERS Safety Report 4421617-4 (Version None)
Quarter: 2004Q3

REPORT INFORMATION
  Report Type: 
  Country: None (occurrence: None)
  Receive Date: 20040804
  Receipt Date: 20040714
  Transmission Date: 20050211
  Serious: Yes (Hospitalization, Other)
  Sender: FDA-Public Use
  Company Number: C-04-0040

PATIENT
  Age: 74 Year
  Sex: Female
  Weight: 63.5036 kg

DRUGS (5)
  1. LACTULOSE [Suspect]
     Indication: HEPATIC FAILURE
     Dosage: 1 TBS, 4 TIMES/DAY, ORALLY
     Route: 048
     Dates: start: 20040520, end: 20040527
  2. SPIRONOLACTONE [Concomitant]
  3. FUROSEMIDE [Concomitant]
  4. PRENATAL VITAMINS [Concomitant]
  5. SYNTHROID [Concomitant]

REACTIONS (8)
  - AGITATION [None]
  - CONFUSIONAL STATE [None]
  - DISORIENTATION [None]
  - DRUG INEFFECTIVE [None]
  - FAECAL INCONTINENCE [None]
  - HYPERAMMONAEMIA [None]
  - HYPOTHYROIDISM [None]
  - PHARMACEUTICAL PRODUCT COMPLAINT [None]
